FAERS Safety Report 18861704 (Version 1)
Quarter: 2021Q1

REPORT INFORMATION
  Report Type: Spontaneous
  Country: CA (occurrence: CA)
  Receive Date: 20210208
  Receipt Date: 20210208
  Transmission Date: 20210420
  Serious: Yes (Hospitalization, Other)
  Sender: FDA-Public Use
  Company Number: NVSC2021CA020105

PATIENT
  Age: 57 Year
  Sex: Female

DRUGS (10)
  1. PALBOCICLIB [Suspect]
     Active Substance: PALBOCICLIB
     Indication: CHEMOTHERAPY
     Dosage: UNK
     Route: 048
  2. FEMARA [Suspect]
     Active Substance: LETROZOLE
     Indication: BREAST CANCER
     Dosage: UNK
     Route: 048
  3. VINORELBINE [Suspect]
     Active Substance: VINORELBINE TARTRATE
     Indication: CHEMOTHERAPY
     Dosage: UNK
     Route: 065
  4. TAMOXIFEN [Suspect]
     Active Substance: TAMOXIFEN
     Indication: CHEMOTHERAPY
     Dosage: UNK
     Route: 048
  5. GEMCITABINE. [Suspect]
     Active Substance: GEMCITABINE
     Indication: CHEMOTHERAPY
     Dosage: UNK
     Route: 065
  6. CAPECITABINE. [Suspect]
     Active Substance: CAPECITABINE
     Indication: BREAST CANCER
     Dosage: UNK
     Route: 065
  7. FULVESTRANT. [Suspect]
     Active Substance: FULVESTRANT
     Indication: CHEMOTHERAPY
     Dosage: 500 MG
     Route: 030
  8. TAXOL [Suspect]
     Active Substance: PACLITAXEL
     Indication: CHEMOTHERAPY
     Dosage: UNK
     Route: 042
  9. TAXOTERE [Suspect]
     Active Substance: DOCETAXEL
     Indication: CHEMOTHERAPY
     Dosage: UNK
     Route: 042
  10. ERIBULIN MESILATE [Suspect]
     Active Substance: ERIBULIN
     Indication: CHEMOTHERAPY
     Dosage: UNK
     Route: 065

REACTIONS (4)
  - Malignant neoplasm progression [Unknown]
  - Neuropathy peripheral [Unknown]
  - Drug intolerance [Unknown]
  - Breast cancer [Unknown]
